FAERS Safety Report 5866073-4 (Version None)
Quarter: 2008Q3

REPORT INFORMATION
  Report Type: 
  Country: None (occurrence: None)
  Receive Date: 20080829
  Receipt Date: 20080818
  Transmission Date: 20090109
  Serious: Yes (Hospitalization, Other)
  Sender: FDA-Public Use
  Company Number: NL-BOEHRINGER INGELHEIM GMBH, GERMANY-2008-NL-00476NL

PATIENT
  Sex: Female

DRUGS (6)
  1. SIFROL 0.088MG [Suspect]
     Indication: PARKINSON'S DISEASE
     Dates: start: 20020101
  2. SINEMET [Concomitant]
     Dosage: PRN 0.5-1 EXTRA
  3. COMTAN [Concomitant]
  4. QUETIAPINE [Concomitant]
  5. CLOZAPINE [Concomitant]
     Indication: PSYCHOTIC DISORDER
     Dates: start: 20071031
  6. SEROQUEL [Concomitant]

REACTIONS (9)
  - ANXIETY [None]
  - EATING DISORDER [None]
  - FEELING ABNORMAL [None]
  - FLUID INTAKE REDUCED [None]
  - HALLUCINATION [None]
  - HALLUCINATION, VISUAL [None]
  - INSOMNIA [None]
  - PATHOLOGICAL GAMBLING [None]
  - PSYCHOTIC DISORDER [None]
